FAERS Safety Report 5651023-6 (Version None)
Quarter: 2008Q1

REPORT INFORMATION
  Report Type: 
  Country: None (occurrence: None)
  Receive Date: 20080305
  Receipt Date: 20080227
  Transmission Date: 20080703
  Serious: Yes (Death)
  Sender: FDA-Public Use
  Company Number: A0709753A

PATIENT
  Age: 71 Year
  Sex: Female

DRUGS (7)
  1. SERETIDE [Suspect]
     Indication: DYSPNOEA
     Dates: start: 20080103
  2. ENALAPRIL MALEATE [Concomitant]
     Indication: HYPERTENSION
  3. LASIX [Concomitant]
  4. THEOPHYLLINE [Concomitant]
  5. ATROVENT [Concomitant]
  6. DIGOXIN [Concomitant]
  7. AMIODARONE HCL [Concomitant]

REACTIONS (1)
  - MYOCARDITIS [None]
